FAERS Safety Report 4932345-0 (Version None)
Quarter: 2006Q1

REPORT INFORMATION
  Report Type: 
  Country: None (occurrence: None)
  Receive Date: 20060228
  Receipt Date: 20060216
  Transmission Date: 20060701
  Serious: Yes (Life-Threatening, Hospitalization)
  Sender: FDA-Public Use
  Company Number: 2005161949

PATIENT
  Age: 9 Year
  Sex: Male

DRUGS (2)
  1. GENOTROPIN [Suspect]
     Indication: HYPOPITUITARISM
     Dosage: 3 MG (3 MG, DAILY), SUBCUTANEOUS; 3.6 MG (3.6 MG, DAILY), SUBCUTANEOUS
     Route: 058
     Dates: start: 20041201, end: 20050314
  2. GENOTROPIN [Suspect]
     Indication: HYPOPITUITARISM
     Dosage: 3 MG (3 MG, DAILY), SUBCUTANEOUS; 3.6 MG (3.6 MG, DAILY), SUBCUTANEOUS
     Route: 058
     Dates: start: 20050315, end: 20050504

REACTIONS (2)
  - MEDULLOBLASTOMA [None]
  - NEOPLASM RECURRENCE [None]
